FAERS Safety Report 6906010-4 (Version None)
Quarter: 2010Q3

REPORT INFORMATION
  Report Type: 
  Country: None (occurrence: None)
  Receive Date: 20100804
  Receipt Date: 20100722
  Transmission Date: 20110219
  Serious: Yes (Hospitalization, Other)
  Sender: FDA-Public Use
  Company Number: PHHY2010GR49851

PATIENT
  Age: 68 Year
  Sex: Female

DRUGS (7)
  1. ENTACAPONE [Suspect]
     Indication: TREMOR
  2. ENTACAPONE [Suspect]
     Indication: PARKINSON'S DISEASE
  3. LEVODOPA W/BENSERAZIDE/ [Suspect]
     Indication: TREMOR
     Dosage: 500 MG, UNK
  4. CLONAZEPAM [Suspect]
     Indication: TREMOR
     Dosage: 0.5 MG SPORADICALLY
  5. ROPINIROLE [Suspect]
     Dosage: 0.75 MG, QD
  6. OLANZAPINE [Suspect]
     Dosage: 7 MG, QD
     Route: 030
  7. OLANZAPINE [Suspect]
     Dosage: 2.5 MG, UNK

REACTIONS (10)
  - ACUTE PSYCHOSIS [None]
  - ANXIETY [None]
  - DELUSION [None]
  - DEPRESSION [None]
  - GAIT DISTURBANCE [None]
  - MOBILITY DECREASED [None]
  - ON AND OFF PHENOMENON [None]
  - PERSECUTORY DELUSION [None]
  - TEMPORAL ARTERITIS [None]
  - TREMOR [None]
